FAERS Safety Report 6676709-6 (Version None)
Quarter: 2010Q2

REPORT INFORMATION
  Report Type: 
  Country: None (occurrence: None)
  Receive Date: 20100409
  Receipt Date: 20100409
  Transmission Date: 20101027
  Serious: Yes (Hospitalization)
  Sender: FDA-Public Use
  Company Number: None

PATIENT
  Age: 56 Year
  Sex: Female
  Weight: 65.5901 kg

DRUGS (7)
  1. SAVELLA [Suspect]
     Indication: FIBROMYALGIA
     Dosage: 12.5 MG ONCE BID ORAL
     Route: 048
     Dates: start: 20100402, end: 20100404
  2. CALTRATE + D [Concomitant]
  3. LEVOTHYROXINE [Concomitant]
  4. M.V.I. [Concomitant]
  5. LORTAB [Concomitant]
  6. ELIDEL [Concomitant]
  7. TRIAMCINOLONE [Concomitant]

REACTIONS (3)
  - AFFECT LABILITY [None]
  - PANIC ATTACK [None]
  - SUICIDAL IDEATION [None]
